FAERS Safety Report 5899543-3 (Version None)
Quarter: 2008Q3

REPORT INFORMATION
  Report Type: 
  Country: None (occurrence: None)
  Receive Date: 20080919
  Receipt Date: 20080812
  Transmission Date: 20090109
  Serious: No
  Sender: FDA-Public Use
  Company Number: US-WYE-H05563408

PATIENT

DRUGS (1)
  1. PRISTIQ [Suspect]

REACTIONS (2)
  - AGITATION [None]
  - CONDITION AGGRAVATED [None]
